FAERS Safety Report 12364567 (Version 3)
Quarter: 2016Q3

REPORT INFORMATION
  Report Type: Spontaneous
  Country: GB (occurrence: GB)
  Receive Date: 20160513
  Receipt Date: 20160718
  Transmission Date: 20161109
  Serious: Yes (Hospitalization)
  Sender: FDA-Public Use
  Company Number: GB-JNJFOC-20160208871

PATIENT
  Age: 67 Year
  Sex: Female

DRUGS (3)
  1. FOLIC ACID. [Concomitant]
     Active Substance: FOLIC ACID
     Route: 065
  2. SIMPONI [Suspect]
     Active Substance: GOLIMUMAB
     Indication: PRODUCT USED FOR UNKNOWN INDICATION
     Route: 058
  3. SIMPONI [Suspect]
     Active Substance: GOLIMUMAB
     Indication: PRODUCT USED FOR UNKNOWN INDICATION
     Route: 058
     Dates: start: 20160202

REACTIONS (12)
  - Drug effect decreased [Unknown]
  - Dizziness [Unknown]
  - Arthralgia [Unknown]
  - Weight decreased [Unknown]
  - Cough [Unknown]
  - Feeling abnormal [Unknown]
  - Bereavement [Unknown]
  - Sensory disturbance [Unknown]
  - Mobility decreased [Recovering/Resolving]
  - Pain [Recovering/Resolving]
  - Tremor [Unknown]
  - Blood pressure increased [Recovering/Resolving]

NARRATIVE: CASE EVENT DATE: 2016
